FAERS Safety Report 20916919 (Version 1)
Quarter: 2022Q2

REPORT INFORMATION
  Report Type: Report from Study
  Country: US (occurrence: US)
  Receive Date: 20220606
  Receipt Date: 20220606
  Transmission Date: 20220721
  Serious: Yes (Life-Threatening, Hospitalization, Other)
  Sender: FDA-Public Use
  Company Number: US-AUROBINDO-AUR-APL-2022-020615

PATIENT

DRUGS (1)
  1. ACETAMINOPHEN [Suspect]
     Active Substance: ACETAMINOPHEN
     Indication: Product used for unknown indication
     Dosage: GREATER THAN 4G WITHIN 8H PERIOD
     Route: 048

REACTIONS (4)
  - Encephalopathy [Unknown]
  - Hepatotoxicity [Unknown]
  - Hyperammonaemia [Unknown]
  - Overdose [Unknown]
